FAERS Safety Report 17371112 (Version 2)
Quarter: 2025Q4

REPORT INFORMATION
  Report Type: Report from Study
  Country: EU (occurrence: EU)
  Receive Date: 20200205
  Receipt Date: 20251129
  Transmission Date: 20260117
  Serious: Yes (Hospitalization, Congenital Anomaly, Other)
  Sender: AUROBINDO
  Company Number: EU-TEVA-2020-FR-1176040

PATIENT
  Sex: Male

DRUGS (5)
  1. LAMIVUDINE [Suspect]
     Active Substance: LAMIVUDINE
     Indication: HIV infection
     Dosage: UNK, ONE COURSE
  2. NEVIRAPINE [Suspect]
     Active Substance: NEVIRAPINE
     Indication: HIV infection
     Dosage: UNK, ONE COURSE
  3. DIDANOSINE [Suspect]
     Active Substance: DIDANOSINE
     Indication: HIV infection
     Dosage: UNK
  4. RETROVIR [Suspect]
     Active Substance: ZIDOVUDINE
     Indication: HIV infection
     Dosage: UNK, ONE COURSES
  5. ZIDOVUDINE [Suspect]
     Active Substance: ZIDOVUDINE
     Indication: HIV infection
     Dosage: UNK, 2 COURSES

REACTIONS (2)
  - Pinealoblastoma [Unknown]
  - Foetal exposure during pregnancy [Unknown]
